FAERS Safety Report 21732213 (Version 1)
Quarter: 2022Q4

REPORT INFORMATION
  Report Type: Spontaneous
  Country: CN (occurrence: CN)
  Receive Date: 20221215
  Receipt Date: 20221215
  Transmission Date: 20230112
  Serious: Yes (Hospitalization)
  Sender: FDA-Public Use
  Company Number: CN-STRIDES ARCOLAB LIMITED-2022SP016794

PATIENT
  Age: 2 Month
  Sex: Male

DRUGS (17)
  1. DEXAMETHASONE [Suspect]
     Active Substance: DEXAMETHASONE
     Indication: Cytomegalovirus infection
     Dosage: UNK
     Route: 065
  2. DEXAMETHASONE [Suspect]
     Active Substance: DEXAMETHASONE
     Indication: Pneumonia viral
  3. PREDNISONE ACETATE [Suspect]
     Active Substance: PREDNISONE ACETATE
     Indication: Cytomegalovirus infection
     Dosage: UNK
     Route: 065
  4. PREDNISONE ACETATE [Suspect]
     Active Substance: PREDNISONE ACETATE
     Indication: Pneumonia viral
  5. METHYLPREDNISOLONE SODIUM SUCCINATE [Suspect]
     Active Substance: METHYLPREDNISOLONE SODIUM SUCCINATE
     Indication: Cytomegalovirus infection
     Dosage: UNK
     Route: 065
  6. METHYLPREDNISOLONE SODIUM SUCCINATE [Suspect]
     Active Substance: METHYLPREDNISOLONE SODIUM SUCCINATE
     Indication: Pneumonia viral
     Dosage: 10 MILLIGRAM EVERY 12 HOURS
     Route: 065
  7. GANCICLOVIR [Concomitant]
     Active Substance: GANCICLOVIR
     Indication: Cytomegalovirus infection
     Dosage: UNK
     Route: 065
  8. GANCICLOVIR [Concomitant]
     Active Substance: GANCICLOVIR
     Indication: Pneumonia viral
  9. IMIPENEM [Concomitant]
     Active Substance: IMIPENEM
     Indication: Anti-infective therapy
     Dosage: UNK
     Route: 065
  10. CEFOTAXIME [Concomitant]
     Active Substance: CEFOTAXIME SODIUM
     Indication: Anti-infective therapy
     Dosage: UNK
     Route: 065
  11. MEROPENEM [Concomitant]
     Active Substance: MEROPENEM
     Indication: Anti-infective therapy
     Dosage: UNK
     Route: 065
  12. MEROPENEM [Concomitant]
     Active Substance: MEROPENEM
     Indication: Pneumocystis jirovecii pneumonia
     Dosage: 100 MILLIGRAM, EVERY 8 HOURS
     Route: 065
  13. CEFUROXIME SODIUM [Concomitant]
     Active Substance: CEFUROXIME SODIUM
     Indication: Anti-infective therapy
     Dosage: UNK
     Route: 065
  14. CEFTRIAXONE SODIUM [Concomitant]
     Active Substance: CEFTRIAXONE SODIUM
     Indication: Anti-infective therapy
     Dosage: UNK
     Route: 065
  15. CEFIXIME [Concomitant]
     Active Substance: CEFIXIME
     Indication: Anti-infective therapy
     Dosage: UNK
     Route: 065
  16. AZITHROMYCIN [Concomitant]
     Active Substance: AZITHROMYCIN
     Indication: Cytomegalovirus infection
     Dosage: UNK
     Route: 065
  17. AZITHROMYCIN [Concomitant]
     Active Substance: AZITHROMYCIN
     Indication: Pneumonia viral

REACTIONS (3)
  - Acute respiratory distress syndrome [Unknown]
  - Pneumothorax [Unknown]
  - Pneumocystis jirovecii pneumonia [Unknown]
